FAERS Safety Report 9580002 (Version 1)
Quarter: 2013Q3

REPORT INFORMATION
  Report Type: Spontaneous
  Country: GB (occurrence: None)
  Receive Date: 20130930
  Receipt Date: 20130930
  Transmission Date: 20140515
  Serious: Yes (Other)
  Sender: FDA-Public Use
  Company Number: KAD201309-001234

PATIENT
  Age: 42 Year
  Sex: Male
  Weight: 56 kg

DRUGS (6)
  1. RIBAVIRIN [Suspect]
     Indication: HEPATITIS C
     Dosage: 1000 MG, ONCE DAILY
     Dates: start: 20120920, end: 20130116
  2. INCIVO [Suspect]
     Indication: HEPATITIS C
     Dosage: 750 MG, TWICE DAILY, ORAL
     Route: 048
     Dates: start: 20120920, end: 20130116
  3. CITALOPRAM (CITALOPRAM) [Concomitant]
  4. PEGINTERFERON ALFA-2B (INTERFERON ALFA -2B) [Concomitant]
  5. RITONAVIR (RITONAVIR) [Concomitant]
  6. TRUVADA (EMTRICITABINE, TENOFOVIR DISOPROXIL FUMARATE) [Concomitant]

REACTIONS (3)
  - Anaemia [None]
  - Syncope [None]
  - Drug ineffective [None]
